FAERS Safety Report 20842855 (Version 1)
Quarter: 2022Q2

REPORT INFORMATION
  Report Type: Spontaneous
  Country: US (occurrence: None)
  Receive Date: 20220517
  Receipt Date: 20220517
  Transmission Date: 20220720
  Serious: Yes (Death)
  Sender: FDA-Public Use
  Company Number: None

PATIENT
  Age: 70 Year
  Sex: Male

DRUGS (6)
  1. REPATHA [Suspect]
     Active Substance: EVOLOCUMAB
     Indication: Hyperlipidaemia
     Dosage: 140MG O14D SUBCUTNEOUSLY
     Route: 058
     Dates: start: 20201118
  2. LYRICA [Concomitant]
     Active Substance: PREGABALIN
  3. DICLOFENAC [Concomitant]
     Active Substance: DICLOFENAC
  4. METHOCARBAMOL [Concomitant]
     Active Substance: METHOCARBAMOL
  5. ASPIRIN [Concomitant]
     Active Substance: ASPIRIN
  6. VITAMINS [Concomitant]
     Active Substance: VITAMINS

REACTIONS (1)
  - Death [None]
